FAERS Safety Report 17023648 (Version 15)
Quarter: 2020Q2

REPORT INFORMATION
  Report Type: Report from Study
  Country: BR (occurrence: BR)
  Receive Date: 20191113
  Receipt Date: 20200630
  Transmission Date: 20200713
  Serious: Yes (Life-Threatening, Hospitalization)
  Sender: FDA-Public Use
  Company Number: BR-ROCHE-2469077

PATIENT
  Age: 47 Year
  Sex: Female
  Weight: 90.35 kg

DRUGS (52)
  1. METHYLPREDNISOLONE. [Concomitant]
     Active Substance: METHYLPREDNISOLONE
     Dosage: (WEEK 2 TO WEEK 240) 24/JAN/2013, 13/JUN/2013, 19/NOV/2013, 22/MAY/2014, 13/NOV/2014, 25/NOV/2014, 3
     Route: 065
     Dates: start: 20121220
  2. PARACETAMOL [Concomitant]
     Active Substance: ACETAMINOPHEN
     Indication: PAIN
     Dosage: (WEEK 0 TO WEEK 240) 13/NOV/2014, 25/NOV/2014, 30/APR/2015, 20/OCT/2015, 04/APR/2016, 05/APR/2016, 2
     Route: 065
     Dates: start: 20140522
  3. VITAMIN C [Concomitant]
     Active Substance: ASCORBIC ACID
     Route: 065
     Dates: start: 20191110, end: 20191121
  4. PLACEBO [Suspect]
     Active Substance: UNSPECIFIED INGREDIENT
     Indication: RELAPSING-REMITTING MULTIPLE SCLEROSIS
     Route: 058
     Dates: start: 20121220, end: 20121220
  5. OCRELIZUMAB. [Suspect]
     Active Substance: OCRELIZUMAB
     Dosage: INFUSION COMPLETED WITHOUT INTERVENTION
     Route: 042
     Dates: start: 20150430, end: 20150430
  6. HIGROTON [Concomitant]
     Active Substance: CHLORTHALIDONE
     Indication: HYPERTENSION
     Route: 065
     Dates: start: 20170110
  7. GLUCOSAMINE AND CHONDROITIN [Concomitant]
     Active Substance: CHONDROITIN SULFATE (BOVINE)\GLUCOSAMINE HYDROCHLORIDE
     Indication: PAIN
     Dosage: 1 UNITS
     Route: 065
     Dates: start: 20160622
  8. PROMETAZINA [PROMETHAZINE] [Concomitant]
     Dosage: (WEEK 24 TO WEEK 240) 13/JUN/2013, 19/NOV/2013, 22/MAY/2014, 13/NOV/2014, 25/NOV/2014, 30/APR/2015,
     Route: 065
     Dates: start: 20130124
  9. ENOXAPARIN [Concomitant]
     Active Substance: ENOXAPARIN
     Route: 065
     Dates: start: 20191108, end: 20191121
  10. TAZOCIN [Concomitant]
     Active Substance: PIPERACILLIN SODIUM\TAZOBACTAM SODIUM
     Indication: PNEUMONIA
     Route: 065
     Dates: start: 20191201, end: 20191207
  11. DRAMAMINE [Concomitant]
     Active Substance: DIMENHYDRINATE
     Dosage: FOR SLEEP INDUCTION
     Route: 065
     Dates: start: 20130206
  12. GABALON [Concomitant]
     Active Substance: BACLOFEN
     Dosage: 1 TABLET
     Route: 065
     Dates: start: 20191110, end: 20191210
  13. CHLORPROMAZINE. [Concomitant]
     Active Substance: CHLORPROMAZINE
     Dosage: 10 DROPS
     Route: 065
     Dates: start: 20191113, end: 20191113
  14. OCRELIZUMAB. [Suspect]
     Active Substance: OCRELIZUMAB
     Dosage: INFUSION COMPLETED WITHOUT INTERVENTION
     Route: 042
     Dates: start: 20140522, end: 20140522
  15. OCRELIZUMAB. [Suspect]
     Active Substance: OCRELIZUMAB
     Dosage: INFUSION COMPLETED WITHOUT INTERVENTION
     Route: 042
     Dates: start: 20141125, end: 20141125
  16. OCRELIZUMAB. [Suspect]
     Active Substance: OCRELIZUMAB
     Dosage: INFUSION COMPLETED WITHOUT INTERVENTION
     Route: 042
     Dates: start: 20180206, end: 20180206
  17. OCRELIZUMAB. [Suspect]
     Active Substance: OCRELIZUMAB
     Dosage: INFUSION COMPLETED WITHOUT INTERVENTION
     Route: 042
     Dates: start: 20180810, end: 20180810
  18. OCRELIZUMAB. [Suspect]
     Active Substance: OCRELIZUMAB
     Dosage: INFUSION COMPLETED WITHOUT INTERVENTION
     Route: 042
     Dates: start: 20190731, end: 20190731
  19. ONDANSETRON [Concomitant]
     Active Substance: ONDANSETRON
     Dosage: 1 AMPULE
     Route: 065
     Dates: start: 20191108, end: 20191108
  20. PLACEBO [Suspect]
     Active Substance: UNSPECIFIED INGREDIENT
     Route: 058
     Dates: start: 20141024, end: 20141110
  21. OCRELIZUMAB. [Suspect]
     Active Substance: OCRELIZUMAB
     Indication: RELAPSING-REMITTING MULTIPLE SCLEROSIS
     Dosage: INFUSION WAS INTERRUPTED DUE TO INFUSION RELATED REACTION
     Route: 042
     Dates: start: 20121220, end: 20121220
  22. OCRELIZUMAB. [Suspect]
     Active Substance: OCRELIZUMAB
     Dosage: INFUSION COMPLETED WITHOUT INTERVENTION
     Route: 042
     Dates: start: 20160923, end: 20160923
  23. OCRELIZUMAB. [Suspect]
     Active Substance: OCRELIZUMAB
     Dosage: INFUSION COMPLETED WITHOUT INTERVENTION
     Route: 042
     Dates: start: 20190125, end: 20190125
  24. SYNTHROID [Concomitant]
     Active Substance: LEVOTHYROXINE SODIUM
     Indication: HYPOTHYROIDISM
     Route: 065
     Dates: start: 201206
  25. OLANZAPINE. [Concomitant]
     Active Substance: OLANZAPINE
     Route: 065
     Dates: start: 20191108, end: 20191109
  26. ENOXAPARIN [Concomitant]
     Active Substance: ENOXAPARIN
     Route: 065
     Dates: start: 20191202, end: 20191209
  27. CARBAMAZEPINE. [Concomitant]
     Active Substance: CARBAMAZEPINE
     Dosage: FROM 23/SEP/2019 TO 04/NOV/2019: 400 MG
     Route: 065
     Dates: start: 20190820, end: 20190922
  28. OCRELIZUMAB. [Suspect]
     Active Substance: OCRELIZUMAB
     Dosage: INFUSION COMPLETED WITHOUT INTERVENTION
     Route: 042
     Dates: start: 20130613, end: 20130613
  29. OCRELIZUMAB. [Suspect]
     Active Substance: OCRELIZUMAB
     Dosage: INFUSION COMPLETED WITHOUT INTERVENTION
     Route: 042
     Dates: start: 20131119, end: 20131119
  30. OCRELIZUMAB. [Suspect]
     Active Substance: OCRELIZUMAB
     Dosage: INFUSION COMPLETED WITHOUT INTERVENTION
     Route: 042
     Dates: start: 20170307, end: 20170307
  31. RANITIDINE. [Concomitant]
     Active Substance: RANITIDINE
     Indication: GASTROINTESTINAL DISORDER PROPHYLAXIS
     Route: 065
     Dates: start: 20191202, end: 20191208
  32. CLONAZEPAM. [Concomitant]
     Active Substance: CLONAZEPAM
     Route: 065
     Dates: start: 20191203, end: 20191203
  33. BOTULINUM TOXIN TYPE A [Concomitant]
     Active Substance: BOTULINUM TOXIN TYPE A
     Route: 065
     Dates: start: 20190829, end: 20190829
  34. KETOCONAZOLE. [Concomitant]
     Active Substance: KETOCONAZOLE
     Indication: SKIN INJURY
     Route: 065
     Dates: start: 20200118, end: 20200119
  35. CEPHALEXIN [CEFALEXIN] [Concomitant]
     Active Substance: CEPHALEXIN
     Indication: PNEUMONIA
     Route: 065
     Dates: start: 20200511, end: 20200515
  36. OCRELIZUMAB. [Suspect]
     Active Substance: OCRELIZUMAB
     Dosage: INFUSION COMPLETED WITHOUT INTERVENTION
     Route: 042
     Dates: start: 20130124, end: 20130124
  37. OCRELIZUMAB. [Suspect]
     Active Substance: OCRELIZUMAB
     Dosage: INFUSION COMPLETED WITHOUT INTERVENTION
     Route: 042
     Dates: start: 20151020, end: 20151020
  38. OCRELIZUMAB. [Suspect]
     Active Substance: OCRELIZUMAB
     Dosage: INFUSION COMPLETED WITHOUT INTERVENTION
     Route: 042
     Dates: start: 20160405, end: 20160405
  39. OCRELIZUMAB. [Suspect]
     Active Substance: OCRELIZUMAB
     Dosage: INFUSION COMPLETED WITHOUT INTERVENTION
     Route: 042
     Dates: start: 20170822, end: 20170822
  40. AMPICILLIN;SULBACTAM [Concomitant]
     Active Substance: AMPICILLIN SODIUM\SULBACTAM SODIUM
     Indication: PNEUMONIA
     Route: 065
     Dates: start: 20191112, end: 20191117
  41. AMPICILLIN [Concomitant]
     Active Substance: AMPICILLIN
     Route: 065
     Dates: start: 20191112, end: 20191117
  42. OCRELIZUMAB. [Suspect]
     Active Substance: OCRELIZUMAB
     Indication: RELAPSING-REMITTING MULTIPLE SCLEROSIS
     Dosage: INFUSION COMPLETED WITHOUT INTERVENTION
     Route: 042
     Dates: start: 20141113, end: 20141113
  43. DROSPIRENONE [Concomitant]
     Active Substance: DROSPIRENONE
     Indication: OVARIAN CYST
     Route: 065
     Dates: start: 20140425, end: 20140515
  44. PEMBROLIZUMAB. [Concomitant]
     Active Substance: PEMBROLIZUMAB
     Indication: PROGRESSIVE MULTIFOCAL LEUKOENCEPHALOPATHY
     Route: 065
     Dates: start: 20191111, end: 20200118
  45. CHLORPROMAZINE. [Concomitant]
     Active Substance: CHLORPROMAZINE
     Dosage: 03/DEC/2019 TO 03/DEC/2019: 40 MG AND 01/DEC/2019 TO 01/DEC/2019: 40 MG
     Route: 065
     Dates: start: 20191109, end: 20191109
  46. MIRTAZAPINE. [Concomitant]
     Active Substance: MIRTAZAPINE
     Route: 065
     Dates: start: 20191109, end: 20191210
  47. CHLORPROMAZINE. [Concomitant]
     Active Substance: CHLORPROMAZINE
     Route: 065
     Dates: start: 20191111, end: 20191112
  48. QUETIAPINE. [Concomitant]
     Active Substance: QUETIAPINE
     Indication: PSYCHOMOTOR HYPERACTIVITY
     Route: 065
     Dates: start: 20191208, end: 20191210
  49. NYSTATIN. [Concomitant]
     Active Substance: NYSTATIN
  50. CEPHALEXIN [CEFALEXIN] [Concomitant]
     Active Substance: CEPHALEXIN
     Route: 065
     Dates: start: 20200516, end: 20200520
  51. MONURIL [Concomitant]
     Active Substance: FOSFOMYCIN TROMETHAMINE
     Indication: URINARY TRACT INFECTION
     Route: 065
     Dates: start: 20200422, end: 20200422
  52. MEROPENEN [Concomitant]
     Indication: URINARY TRACT INFECTION
     Route: 065
     Dates: start: 20200610

REACTIONS (1)
  - Encephalitis [Recovering/Resolving]

NARRATIVE: CASE EVENT DATE: 201906
